FAERS Safety Report 5720603-1 (Version None)
Quarter: 2008Q2

REPORT INFORMATION
  Report Type: 
  Country: None (occurrence: None)
  Receive Date: 20080429
  Receipt Date: 20080428
  Transmission Date: 20081010
  Serious: Yes (Hospitalization, Other)
  Sender: FDA-Public Use
  Company Number: US-BAYER-200714630NA

PATIENT
  Age: 30 Year
  Sex: Female
  Weight: 62 kg

DRUGS (1)
  1. MIRENA [Suspect]
     Indication: CONTRACEPTION
     Route: 015
     Dates: start: 20070822

REACTIONS (5)
  - ABDOMINAL PAIN [None]
  - BACK PAIN [None]
  - CHROMATURIA [None]
  - HEADACHE [None]
  - JAUNDICE [None]
